FAERS Safety Report 5191235-1 (Version None)
Quarter: 2006Q4

REPORT INFORMATION
  Report Type: 
  Country: None (occurrence: None)
  Receive Date: 20061220
  Receipt Date: 20061220
  Transmission Date: 20070319
  Serious: Yes (Hospitalization)
  Sender: FDA-Public Use
  Company Number: None

PATIENT
  Age: 54 Year
  Sex: Male

DRUGS (7)
  1. WARFARIN SODIUM [Suspect]
     Indication: ORTHOPEDIC PROCEDURE
     Dates: start: 20061020, end: 20061031
  2. WARFARIN SODIUM [Suspect]
     Indication: THROMBOSIS PROPHYLAXIS
     Dates: start: 20061020, end: 20061031
  3. CITALOPRAM HYDROBROMIDE [Concomitant]
  4. GABAPENTIN [Concomitant]
  5. HYDROCODONE 10 MG/APAP [Concomitant]
  6. QUETIAPINE FUMARATE [Concomitant]
  7. WARFARIN NA [Concomitant]

REACTIONS (3)
  - INCISION SITE COMPLICATION [None]
  - INTERNATIONAL NORMALISED RATIO INCREASED [None]
  - POST PROCEDURAL DRAINAGE [None]
